FAERS Safety Report 4805952-3 (Version None)
Quarter: 2005Q4

REPORT INFORMATION
  Report Type: 
  Country: None (occurrence: None)
  Receive Date: 20051021
  Receipt Date: 20050926
  Transmission Date: 20060501
  Serious: Yes (Death)
  Sender: FDA-Public Use
  Company Number: 2005GB01861

PATIENT
  Age: 51 Year
  Sex: Male
  Weight: 70 kg

DRUGS (2)
  1. SEROQUEL [Suspect]
     Indication: SCHIZOPHRENIA
     Route: 048
     Dates: start: 20040401
  2. CLOPIXOL [Concomitant]
     Indication: SCHIZOPHRENIA
     Route: 030

REACTIONS (4)
  - ARRHYTHMIA [None]
  - CONSTIPATION [None]
  - DRY MOUTH [None]
  - SUDDEN DEATH [None]
